FAERS Safety Report 7584716-4 (Version None)
Quarter: 2011Q2

REPORT INFORMATION
  Report Type: 
  Country: None (occurrence: None)
  Receive Date: 20110630
  Receipt Date: 20110617
  Transmission Date: 20111010
  Serious: Yes (Other)
  Sender: FDA-Public Use
  Company Number: PHHY2011DE54028

PATIENT
  Age: 77 Year
  Sex: Female
  Weight: 51 kg

DRUGS (3)
  1. GLEEVEC [Suspect]
     Indication: GASTROINTESTINAL STROMAL TUMOUR
     Dosage: 400 MG, DAILY
     Route: 048
     Dates: start: 20100601, end: 20110501
  2. OXAZEPAM [Concomitant]
     Dosage: 50 MG, UNK
     Route: 048
  3. LEVOTHYROXINE SODIUM [Concomitant]
     Dosage: 100 UG, UNK
     Route: 048

REACTIONS (14)
  - MUCOSAL INFLAMMATION [None]
  - HYPERACUSIS [None]
  - GASTROINTESTINAL DISORDER [None]
  - EYE IRRITATION [None]
  - DYSGEUSIA [None]
  - FACE OEDEMA [None]
  - PERIORBITAL OEDEMA [None]
  - OEDEMA PERIPHERAL [None]
  - BONE PAIN [None]
  - SLEEP DISORDER [None]
  - EUSTACHIAN TUBE DISORDER [None]
  - PRURITUS [None]
  - PAROSMIA [None]
  - MYALGIA [None]
